FAERS Safety Report 6640125-3 (Version None)
Quarter: 2010Q1

REPORT INFORMATION
  Report Type: 
  Country: None (occurrence: None)
  Receive Date: 20100318
  Receipt Date: 20100305
  Transmission Date: 20100710
  Serious: Yes (Other)
  Sender: FDA-Public Use
  Company Number: US-ELI_LILLY_AND_COMPANY-US201003002149

PATIENT
  Age: 72 Year
  Sex: Female

DRUGS (1)
  1. CYMBALTA [Suspect]
     Indication: DEPRESSION
     Dosage: 60 MG, EACH EVENING
     Route: 065
     Dates: start: 20090901

REACTIONS (5)
  - PRURITUS [None]
  - RASH [None]
  - RASH MACULO-PAPULAR [None]
  - SOMNOLENCE [None]
  - STEVENS-JOHNSON SYNDROME [None]
